FAERS Safety Report 8780358 (Version 2)
Quarter: 2012Q4

REPORT INFORMATION
  Report Type: Spontaneous
  Country: NO (occurrence: None)
  Receive Date: 20120828
  Receipt Date: 20121128
  Transmission Date: 20130627
  Serious: No
  Sender: FDA-Public Use
  Company Number: THQ2012A07441

PATIENT
  Age: 68 Year
  Sex: Female

DRUGS (10)
  1. LANSOPRAZOLE [Suspect]
     Indication: GERD
  2. PANTOPRAZOLE [Suspect]
  3. DIAZEPAM [Concomitant]
  4. METFORMIN [Concomitant]
  5. GLIBENCLAMIDE [Concomitant]
  6. METOCLOPRAMIDE [Concomitant]
  7. FLUNITRAZEPAM [Concomitant]
  8. PARACETAMOL [Concomitant]
  9. AMLODIPINE [Concomitant]
  10. LEVOTHYROXINE [Concomitant]

REACTIONS (1)
  - Neuroendocrine tumour [None]
